FAERS Safety Report 8875381 (Version 2)
Quarter: 2012Q4

REPORT INFORMATION
  Report Type: 
  Country: US (occurrence: US)
  Receive Date: 20121023
  Receipt Date: 20121228
  Transmission Date: 20130627
  Serious: No
  Sender: FDA-Public Use
  Company Number: US-VERTEX PHARMACEUTICAL INC.-2012-023138

PATIENT
  Age: 1 Year
  Sex: Male
  Weight: 24 kg

DRUGS (1)
  1. KALYDECO [Suspect]
     Dosage: Possibly 3 tablets
     Route: 048
     Dates: start: 20121016, end: 20121016

REACTIONS (1)
  - Accidental exposure to product by child [Recovered/Resolved]
